FAERS Safety Report 9671004 (Version 2)
Quarter: 2013Q4

REPORT INFORMATION
  Report Type: Spontaneous
  Country: FR (occurrence: FR)
  Receive Date: 20131106
  Receipt Date: 20131219
  Transmission Date: 20140711
  Serious: Yes (Disabling)
  Sender: FDA-Public Use
  Company Number: FR-ABBVIE-13P-056-1163516-00

PATIENT
  Age: 40 Year
  Sex: Male
  Weight: 88 kg

DRUGS (1)
  1. HUMIRA [Suspect]
     Indication: PSORIATIC ARTHROPATHY
     Route: 058
     Dates: start: 20131007

REACTIONS (4)
  - VIIth nerve paralysis [Recovered/Resolved]
  - Paraesthesia oral [Unknown]
  - Swollen tongue [Not Recovered/Not Resolved]
  - Dysgeusia [Not Recovered/Not Resolved]
